FAERS Safety Report 19376144 (Version 2)
Quarter: 2021Q2

REPORT INFORMATION
  Report Type: Spontaneous
  Country: ES (occurrence: ES)
  Receive Date: 20210528
  Receipt Date: 20210528
  Transmission Date: 20210717
  Serious: Yes (Other)
  Sender: FDA-Public Use
  Company Number: ES-PFIZER INC-2021561495

PATIENT
  Age: 76 Year
  Sex: Female

DRUGS (6)
  1. GENOTONORM [Suspect]
     Active Substance: SOMATROPIN
     Dosage: UNK
     Dates: start: 2006
  2. SPIRONOLACTONE. [Suspect]
     Active Substance: SPIRONOLACTONE
  3. ARTEVIL [Suspect]
     Active Substance: CLOPIDOGREL BISULFATE
  4. EUTIROX [Suspect]
     Active Substance: LEVOTHYROXINE SODIUM
     Indication: THYROID DISORDER
  5. EZETROL [Suspect]
     Active Substance: EZETIMIBE
     Indication: BLOOD CHOLESTEROL
  6. COAPROVEL [Suspect]
     Active Substance: HYDROCHLOROTHIAZIDE\IRBESARTAN
     Indication: BLOOD PRESSURE MEASUREMENT
     Dosage: 300 UNK

REACTIONS (4)
  - Renal impairment [Unknown]
  - Nasopharyngitis [Unknown]
  - Kidney small [Unknown]
  - Pyrexia [Unknown]
